FAERS Safety Report 7247582-2 (Version None)
Quarter: 2011Q1

REPORT INFORMATION
  Report Type: 
  Country: None (occurrence: None)
  Receive Date: 20110127
  Receipt Date: 20110120
  Transmission Date: 20110831
  Serious: Yes (Hospitalization)
  Sender: FDA-Public Use
  Company Number: AT-PFIZER INC-2011013843

PATIENT
  Age: 40 Year
  Sex: Male

DRUGS (1)
  1. EFFEXOR XR [Suspect]
     Indication: SUICIDAL IDEATION
     Dosage: 150 MG, 10 DOSES TOTAL
     Route: 048
     Dates: start: 20100312

REACTIONS (4)
  - HYPERTHERMIA [None]
  - INTENTIONAL OVERDOSE [None]
  - NAUSEA [None]
  - ERYTHEMA [None]
